FAERS Safety Report 8338507-7 (Version None)
Quarter: 2012Q2

REPORT INFORMATION
  Report Type: 
  Country: None (occurrence: None)
  Receive Date: 20120504
  Receipt Date: 20120426
  Transmission Date: 20120825
  Serious: Yes (Hospitalization)
  Sender: FDA-Public Use
  Company Number: US-ABBOTT-12P-163-0918063-00

PATIENT
  Sex: Male
  Weight: 70.37 kg

DRUGS (22)
  1. FLEXERIL [Concomitant]
     Indication: PAIN
  2. MORPHINE [Concomitant]
     Indication: ARTHRALGIA
  3. SEROQUEL [Concomitant]
     Indication: INSOMNIA
  4. HYDROXYZINE PAM [Concomitant]
     Indication: DEPRESSION
     Dosage: 250MG 2 DURING DAY TIME AND 2 AT BEDTIME
  5. HYDROXYZINE PAM [Concomitant]
     Indication: SLEEP DISORDER
  6. CELEBREX [Concomitant]
     Indication: ARTHRITIS
  7. HYTRIN [Concomitant]
     Indication: INSOMNIA
  8. DOSE PACK [Suspect]
     Indication: RASH PAPULAR
  9. ENTOCORT EC [Suspect]
     Indication: CROHN'S DISEASE
     Dates: start: 20120318
  10. DILAUDID [Concomitant]
     Indication: ARTHRALGIA
  11. PRILOSEC [Concomitant]
     Indication: GASTROOESOPHAGEAL REFLUX DISEASE
  12. CELEBREX [Concomitant]
     Indication: ARTHRALGIA
  13. ENTOCORT EC [Suspect]
     Dates: start: 20120319
  14. REMERON [Concomitant]
     Indication: INSOMNIA
  15. PRISTIQ [Concomitant]
     Indication: DEPRESSION
  16. DOSE PACK [Suspect]
     Indication: RASH PRURITIC
  17. SYNTHROID [Concomitant]
     Indication: HYPOTHYROIDISM
  18. XANAX [Concomitant]
     Indication: PSYCHOTIC DISORDER
  19. HUMIRA [Suspect]
     Indication: CROHN'S DISEASE
     Dosage: LOADING DOSE 4 PENS IN ONE DAY
     Dates: start: 20120312, end: 20120312
  20. HUMIRA [Suspect]
     Dates: start: 20120312
  21. MECLIZINE [Concomitant]
     Indication: VERTIGO
  22. XANAX [Concomitant]
     Indication: ANXIETY

REACTIONS (13)
  - FEELING ABNORMAL [None]
  - RASH PRURITIC [None]
  - CROHN'S DISEASE [None]
  - HAEMOGLOBIN DECREASED [None]
  - RASH PAPULAR [None]
  - GASTROINTESTINAL HAEMORRHAGE [None]
  - FALL [None]
  - SMALL INTESTINE ULCER [None]
  - DIZZINESS [None]
  - RASH [None]
  - DYSSTASIA [None]
  - HYPERTENSION [None]
  - TREMOR [None]
